FAERS Safety Report 16557510 (Version 2)
Quarter: 2022Q3

REPORT INFORMATION
  Report Type: Report from Study
  Country: US (occurrence: US)
  Receive Date: 20190711
  Receipt Date: 20220727
  Transmission Date: 20221026
  Serious: No
  Sender: FDA-Public Use
  Company Number: PHEH2019US028774

PATIENT
  Sex: Male

DRUGS (1)
  1. COSENTYX [Suspect]
     Active Substance: SECUKINUMAB
     Indication: Psoriasis
     Dosage: 300 MG, QMO (Q4W)
     Route: 065
     Dates: start: 20180105

REACTIONS (2)
  - Tinea versicolour [Unknown]
  - Candida infection [Unknown]

NARRATIVE: CASE EVENT DATE: 20190401
